FAERS Safety Report 15731209 (Version 2)
Quarter: 2019Q1

REPORT INFORMATION
  Report Type: Spontaneous
  Country: US (occurrence: US)
  Receive Date: 20181217
  Receipt Date: 20190118
  Transmission Date: 20190417
  Serious: Yes (Hospitalization, Other)
  Sender: FDA-Public Use
  Company Number: US-PRINSTON PHARMACEUTICAL INC.-2018PRN01484

PATIENT
  Age: 50 Year
  Sex: Female
  Weight: 48.07 kg

DRUGS (7)
  1. LEVETIRACETAM. [Suspect]
     Active Substance: LEVETIRACETAM
     Indication: EPILEPSY
     Dosage: 750 MG, 2X/DAY
     Route: 048
     Dates: end: 201808
  2. VIMPAT [Concomitant]
     Active Substance: LACOSAMIDE
     Dosage: 50 MG, 1X/DAY AT NIGHT
  3. CLONAZEPAM. [Concomitant]
     Active Substance: CLONAZEPAM
     Dosage: 0.5 MG, 1X/DAY AT NIGHT
  4. VITAMIN C [Concomitant]
     Active Substance: ASCORBIC ACID
  5. VITAMIN D [Concomitant]
     Active Substance: CHOLECALCIFEROL
  6. DILANTIN [Concomitant]
     Active Substance: PHENYTOIN
     Dosage: UNK, 2X/DAY IN THE MORNING AND AT NIGHT
  7. DEPAKOTE [Concomitant]
     Active Substance: DIVALPROEX SODIUM
     Dosage: UNK, 2X/DAY IN THE MORNING AND AT NIGHT

REACTIONS (19)
  - Bone marrow disorder [Recovered/Resolved]
  - Gait inability [Not Recovered/Not Resolved]
  - Fall [Recovered/Resolved]
  - Rib fracture [Recovered/Resolved]
  - Urinary tract infection [Recovered/Resolved]
  - Weight decreased [Recovering/Resolving]
  - Asthenia [Not Recovered/Not Resolved]
  - Malaise [Recovered/Resolved]
  - Incontinence [Not Recovered/Not Resolved]
  - Renal failure [Recovered/Resolved]
  - Blood sodium decreased [Recovered/Resolved]
  - Toxicity to various agents [Recovered/Resolved]
  - Reaction to excipient [Recovered/Resolved]
  - Hypophagia [Recovered/Resolved]
  - Ataxia [Unknown]
  - Pneumonia aspiration [Recovered/Resolved]
  - Extra dose administered [Recovered/Resolved]
  - Urinary retention [Recovered/Resolved]
  - Spinal fracture [Recovered/Resolved]

NARRATIVE: CASE EVENT DATE: 2018
